FAERS Safety Report 5133025-1 (Version None)
Quarter: 2006Q4

REPORT INFORMATION
  Report Type: 
  Country: None (occurrence: None)
  Receive Date: 20061023
  Receipt Date: 20060925
  Transmission Date: 20070319
  Serious: Yes (Hospitalization)
  Sender: FDA-Public Use
  Company Number: JP-AVENTIS-200612966JP

PATIENT
  Age: 68 Year
  Sex: Female

DRUGS (2)
  1. ALLEGRA [Suspect]
     Indication: URTICARIA
     Route: 048
     Dates: start: 20060917, end: 20060917
  2. STRONGER NEO MINOPHAGEN C [Concomitant]
     Indication: URTICARIA
     Route: 042
     Dates: start: 20060917, end: 20060917

REACTIONS (4)
  - DIZZINESS [None]
  - FEELING ABNORMAL [None]
  - SPEECH DISORDER [None]
  - VISUAL DISTURBANCE [None]
